FAERS Safety Report 7211747-6 (Version None)
Quarter: 2011Q1

REPORT INFORMATION
  Report Type: 
  Country: None (occurrence: None)
  Receive Date: 20110105
  Receipt Date: 20101231
  Transmission Date: 20110831
  Serious: Yes (Hospitalization)
  Sender: FDA-Public Use
  Company Number: FR-PFIZER INC-2010182418

PATIENT
  Age: 19 Month
  Sex: Male
  Weight: 11.5 kg

DRUGS (1)
  1. ADVIL [Suspect]
     Indication: HYPERTHERMIA
     Dosage: UNK
     Route: 048
     Dates: start: 20101114, end: 20101117

REACTIONS (1)
  - PHARYNGEAL ABSCESS [None]
